FAERS Safety Report 6204639-2 (Version None)
Quarter: 2009Q2

REPORT INFORMATION
  Report Type: 
  Country: None (occurrence: None)
  Receive Date: 20090527
  Receipt Date: 20090515
  Transmission Date: 20091009
  Serious: Yes (Disabling)
  Sender: FDA-Public Use
  Company Number: CO-SANOFI-SYNTHELABO-A01200905351

PATIENT
  Age: 81 Year
  Sex: Female

DRUGS (1)
  1. ARALEN [Suspect]
     Indication: DRUG USE FOR UNKNOWN INDICATION
     Dosage: 250 MG
     Route: 048
     Dates: start: 20090401, end: 20090507

REACTIONS (2)
  - BLINDNESS [None]
  - OPTIC NEURITIS [None]
